FAERS Safety Report 7070141-1 (Version None)
Quarter: 2010Q4

REPORT INFORMATION
  Report Type: 
  Country: None (occurrence: None)
  Receive Date: 20101028
  Receipt Date: 20100901
  Transmission Date: 20110411
  Serious: No
  Sender: FDA-Public Use
  Company Number: US-WYE-H17279610

PATIENT
  Age: 71 Year
  Sex: Female
  Weight: 58.11 kg

DRUGS (3)
  1. ADVIL [Suspect]
     Indication: HEADACHE
     Dosage: TWO GELCAPS AT AN UNKNOWN FREQUENCY
     Route: 048
     Dates: start: 20100701, end: 20100811
  2. PREVACID [Concomitant]
  3. NORVASC [Concomitant]

REACTIONS (2)
  - AGEUSIA [None]
  - THROAT IRRITATION [None]
